FAERS Safety Report 21238002 (Version 1)
Quarter: 2022Q3

REPORT INFORMATION
  Report Type: Spontaneous
  Country: US (occurrence: US)
  Receive Date: 20220822
  Receipt Date: 20220822
  Transmission Date: 20221027
  Serious: No
  Sender: FDA-Public Use
  Company Number: US-BRISTOL-MYERS SQUIBB COMPANY-2022-092676

PATIENT
  Age: 50 Year
  Sex: Female

DRUGS (1)
  1. ORENCIA [Suspect]
     Active Substance: ABATACEPT
     Indication: Hidradenitis
     Dosage: EVERY WEEK
     Route: 058
     Dates: start: 20220728

REACTIONS (4)
  - Condition aggravated [Unknown]
  - Road traffic accident [Unknown]
  - Stress [Unknown]
  - Intentional product use issue [Unknown]
